FAERS Safety Report 7345255-9 (Version None)
Quarter: 2011Q1

REPORT INFORMATION
  Report Type: 
  Country: None (occurrence: None)
  Receive Date: 20110310
  Receipt Date: 20110228
  Transmission Date: 20110831
  Serious: Yes (Death)
  Sender: FDA-Public Use
  Company Number: US-ELI_LILLY_AND_COMPANY-US201102004580

PATIENT
  Age: 39 Year
  Sex: Female

DRUGS (20)
  1. DELTASONE [Concomitant]
     Dosage: 20 MG, UNK
  2. SOMA [Concomitant]
     Dosage: 350 MG, UNK
  3. RELAFEN [Concomitant]
     Dosage: 750 MG, UNK
  4. EFFEXOR [Concomitant]
     Dosage: 37.5 MG, UNK
  5. ATARAX [Concomitant]
  6. VALIUM [Concomitant]
     Dosage: 10 MG, UNK
  7. PROVENTIL-HFA [Concomitant]
     Dosage: 90 UG, UNK
  8. LASIX [Concomitant]
     Dosage: 10 MG, UNK
  9. CYMBALTA [Suspect]
     Indication: FIBROMYALGIA
     Dosage: 60 MG, UNKNOWN
  10. ALTABAX [Concomitant]
     Dosage: 1 %, UNK
  11. REGLAN [Concomitant]
     Dosage: 10 MG, UNK
  12. POTASSIUM GLUCONATE TAB [Concomitant]
     Route: 065
  13. LYRICA [Concomitant]
     Dosage: 200 MG, UNK
  14. TOPAMAX [Concomitant]
     Dosage: 100 MG, UNK
  15. HYDROCODONE BITARTRATE [Concomitant]
  16. VITAMIN D [Concomitant]
     Dosage: 50000 U, UNK
  17. ELAVIL [Concomitant]
     Dosage: 75 MG, UNK
  18. ADVAIR DISKUS 100/50 [Concomitant]
  19. OXYCODONE HCL [Concomitant]
     Dosage: 15 MG, UNK
  20. OPANA [Concomitant]
     Dosage: 20 MG, UNK

REACTIONS (1)
  - DEATH [None]
